FAERS Safety Report 9524123 (Version 1)
Quarter: 2013Q1

REPORT INFORMATION
  Report Type: Spontaneous
  Country: US (occurrence: None)
  Receive Date: 20130305
  Receipt Date: 20130305
  Transmission Date: 20140127
  Serious: Yes (Hospitalization, Other)
  Sender: FDA-Public Use
  Company Number: 163-21880-12032761

PATIENT
  Age: 59 Year
  Sex: Female
  Weight: 56.25 kg

DRUGS (7)
  1. REVLIMID [Suspect]
     Indication: PLASMA CELL MYELOMA
     Dosage: X 14 DAYS
     Route: 048
     Dates: start: 20090801, end: 20090804
  2. ACYCLOVIR (ACICLOVIR) [Concomitant]
  3. ASPIRIN (ACETYLSALICYLIC ACID) [Concomitant]
  4. CALCIUM PLUS D (OS-CAL) [Concomitant]
  5. METOPROLOL (METOPROLOL) [Concomitant]
  6. VITAMINS [Concomitant]
  7. CALCIUM (CALCILUM) [Concomitant]

REACTIONS (4)
  - Local swelling [None]
  - Fatigue [None]
  - Dysgeusia [None]
  - Dysgeusia [None]
